FAERS Safety Report 20181190 (Version 1)
Quarter: 2021Q4

REPORT INFORMATION
  Report Type: Spontaneous
  Country: US (occurrence: US)
  Receive Date: 20211214
  Receipt Date: 20211214
  Transmission Date: 20220303
  Serious: No
  Sender: FDA-Public Use
  Company Number: US-MICRO LABS LIMITED-ML2021-02400

PATIENT
  Sex: Female

DRUGS (1)
  1. TRAVOPROST [Suspect]
     Active Substance: TRAVOPROST
     Dosage: STRENGTH: 0.004%
     Route: 047

REACTIONS (2)
  - Eye irritation [Unknown]
  - Eye pain [Unknown]
